FAERS Safety Report 5076239-1 (Version None)
Quarter: 2006Q3

REPORT INFORMATION
  Report Type: 
  Country: None (occurrence: None)
  Receive Date: 20060804
  Receipt Date: 20060728
  Transmission Date: 20061208
  Serious: Yes (Life-Threatening)
  Sender: FDA-Public Use
  Company Number: AU-2006-018186

PATIENT
  Age: 47 Year
  Sex: Female

DRUGS (3)
  1. BETAFERON (INTERFERON BETA - 1B) INJECTION, 250UG [Suspect]
     Indication: MULTIPLE SCLEROSIS
     Dosage: 6 MIU, SUBCUTANEOUS
     Route: 058
     Dates: start: 20001001
  2. DI-GESIC (DEXTROPROPOXYPHENE) [Concomitant]
  3. TOFRANIL [Concomitant]

REACTIONS (1)
  - BREAST CANCER [None]
